FAERS Safety Report 6635714-6 (Version None)
Quarter: 2010Q1

REPORT INFORMATION
  Report Type: 
  Country: None (occurrence: None)
  Receive Date: 20100312
  Receipt Date: 20100312
  Transmission Date: 20100710
  Serious: Yes (Hospitalization, Other)
  Sender: FDA-Public Use
  Company Number: None

PATIENT
  Sex: Female
  Weight: 49.8957 kg

DRUGS (1)
  1. CEFDINIR [Suspect]
     Indication: EAR INFECTION
     Dosage: 2 PILLS DAILY PO
     Route: 048
     Dates: start: 20100303, end: 20100309

REACTIONS (7)
  - BURNING SENSATION [None]
  - DISCOMFORT [None]
  - NAUSEA [None]
  - PAIN [None]
  - RASH [None]
  - SWELLING [None]
  - URTICARIA [None]
